FAERS Safety Report 10652128 (Version 2)
Quarter: 2014Q4

REPORT INFORMATION
  Report Type: Spontaneous
  Country: CA (occurrence: CA)
  Receive Date: 20141215
  Receipt Date: 20141215
  Transmission Date: 20150529
  Serious: Yes (Hospitalization)
  Sender: FDA-Public Use
  Company Number: CA-ACTELION-A-US2014-108872

PATIENT
  Sex: Female

DRUGS (1)
  1. CARIPUL [Suspect]
     Active Substance: EPOPROSTENOL
     Indication: PULMONARY ARTERIAL HYPERTENSION
     Dosage: 37 NG/KG, PER MIN
     Route: 042

REACTIONS (9)
  - Gastrointestinal haemorrhage [Unknown]
  - Administration site pain [Recovered/Resolved]
  - Device failure [Recovered/Resolved]
  - Administration site inflammation [Recovered/Resolved]
  - Infusion site irritation [Recovered/Resolved]
  - Device alarm issue [Recovered/Resolved]
  - Administration site oedema [Recovered/Resolved]
  - Gastric antral vascular ectasia [Unknown]
  - Administration site erythema [Recovered/Resolved]

NARRATIVE: CASE EVENT DATE: 20141007
